FAERS Safety Report 5200024-0 (Version None)
Quarter: 2007Q1

REPORT INFORMATION
  Report Type: 
  Country: None (occurrence: None)
  Receive Date: 20070105
  Receipt Date: 20061222
  Transmission Date: 20070707
  Serious: Yes (Life-Threatening, Hospitalization, Other)
  Sender: FDA-Public Use
  Company Number: GB-PURDUE-GBR_2006_0002716

PATIENT
  Age: 12 Year
  Sex: Male

DRUGS (3)
  1. MORPHINE SULFATE [Suspect]
     Indication: PAIN
     Route: 065
  2. DICLOFENAC SODIUM [Suspect]
     Indication: PAIN
     Dosage: UNK, UNK
     Route: 065
  3. ACETAMINOPHEN [Suspect]
     Indication: PAIN
     Dosage: UNK, UNK
     Route: 065

REACTIONS (7)
  - ABDOMINAL PAIN [None]
  - CONDITION AGGRAVATED [None]
  - DRUG INEFFECTIVE [None]
  - HYPOVOLAEMIA [None]
  - MEGACOLON [None]
  - PAIN [None]
  - RECTAL HAEMORRHAGE [None]
